FAERS Safety Report 4938922-5 (Version None)
Quarter: 2006Q1

REPORT INFORMATION
  Report Type: 
  Country: None (occurrence: None)
  Receive Date: 20060309
  Receipt Date: 20050105
  Transmission Date: 20060701
  Serious: Yes (Hospitalization, Other)
  Sender: FDA-Public Use
  Company Number: US-MERCK-0501USA00572

PATIENT
  Age: 64 Year
  Sex: Female
  Weight: 83 kg

DRUGS (2)
  1. VIOXX [Suspect]
     Route: 048
  2. VIOXX [Suspect]
     Route: 048

REACTIONS (43)
  - BACK PAIN [None]
  - BLOOD PRESSURE INCREASED [None]
  - BODY TINEA [None]
  - BRONCHITIS [None]
  - BRONCHOSPASM [None]
  - CAROTID ARTERY STENOSIS [None]
  - CEREBRAL ARTERY THROMBOSIS [None]
  - CEREBRAL ISCHAEMIA [None]
  - CEREBROVASCULAR ACCIDENT [None]
  - CONDITION AGGRAVATED [None]
  - DEHYDRATION [None]
  - DEPRESSED LEVEL OF CONSCIOUSNESS [None]
  - DYSARTHRIA [None]
  - DYSPNOEA EXERTIONAL [None]
  - ESCHERICHIA URINARY TRACT INFECTION [None]
  - EXCORIATION [None]
  - FACIAL BONES FRACTURE [None]
  - FACIAL PARESIS [None]
  - FALL [None]
  - GASTROOESOPHAGEAL REFLUX DISEASE [None]
  - HUMERUS FRACTURE [None]
  - HYPERGLYCAEMIA [None]
  - HYPOXIA [None]
  - INSOMNIA [None]
  - IRON DEFICIENCY ANAEMIA [None]
  - KIDNEY INFECTION [None]
  - LACERATION [None]
  - MIXED HYPERLIPIDAEMIA [None]
  - MYOCARDIAL INFARCTION [None]
  - NEUROPATHY [None]
  - NEUROPATHY PERIPHERAL [None]
  - OSTEOPOROSIS [None]
  - PAIN IN EXTREMITY [None]
  - PELVIC FRACTURE [None]
  - POLLAKIURIA [None]
  - PYELONEPHRITIS [None]
  - PYREXIA [None]
  - RHINITIS ALLERGIC [None]
  - SEASONAL ALLERGY [None]
  - SINUS TACHYCARDIA [None]
  - SLEEP APNOEA SYNDROME [None]
  - TENSION HEADACHE [None]
  - URINARY TRACT INFECTION [None]
